FAERS Safety Report 8313402-8 (Version None)
Quarter: 2012Q2

REPORT INFORMATION
  Report Type: 
  Country: None (occurrence: None)
  Receive Date: 20120424
  Receipt Date: 20120306
  Transmission Date: 20120825
  Serious: Yes (Hospitalization)
  Sender: FDA-Public Use
  Company Number: TW-007943

PATIENT
  Age: 82 Year
  Sex: Male
  Weight: 93 kg

DRUGS (5)
  1. ROSUVASTATIN CALCIUM [Concomitant]
  2. GLIMEPIRIDE [Concomitant]
  3. NIFEDIPINE [Concomitant]
  4. DEGARELIX (DEGARELIX) (240 MG, 80 MG) [Suspect]
     Indication: PROSTATE CANCER
     Dosage: SEE IMAGE
     Route: 042
     Dates: start: 20120209
  5. DEGARELIX (DEGARELIX) (240 MG, 80 MG) [Suspect]
     Indication: PROSTATE CANCER
     Dosage: SEE IMAGE
     Route: 042
     Dates: start: 20120110, end: 20120110

REACTIONS (10)
  - NEPHROTIC SYNDROME [None]
  - HYPOALBUMINAEMIA [None]
  - FOCAL SEGMENTAL GLOMERULOSCLEROSIS [None]
  - RENAL FAILURE ACUTE [None]
  - RENAL TUBULAR NECROSIS [None]
  - OEDEMA PERIPHERAL [None]
  - SCROTAL OEDEMA [None]
  - TUBULOINTERSTITIAL NEPHRITIS [None]
  - RENAL ISCHAEMIA [None]
  - PENILE SWELLING [None]
